FAERS Safety Report 21361989 (Version 1)
Quarter: 2022Q3

REPORT INFORMATION
  Report Type: Report from Study
  Country: CR (occurrence: CR)
  Receive Date: 20220922
  Receipt Date: 20220922
  Transmission Date: 20221027
  Serious: Yes (Other)
  Sender: FDA-Public Use
  Company Number: CR-NOVARTISPH-NVSC2022CR194771

PATIENT
  Sex: Female
  Weight: 56 kg

DRUGS (3)
  1. EXFORGE HCT [Suspect]
     Active Substance: AMLODIPINE BESYLATE\HYDROCHLOROTHIAZIDE\VALSARTAN
     Indication: Hypertension
     Dosage: UNK, (10/320/25MG), STARTED MORE THAN 3 YEARS AGO
     Route: 065
     Dates: end: 2020
  2. EXFORGE HCT [Suspect]
     Active Substance: AMLODIPINE BESYLATE\HYDROCHLOROTHIAZIDE\VALSARTAN
     Dosage: UNK, (5/160/12.5 MG), EVERY MORNING
     Route: 065
  3. GLISULIN [Concomitant]
     Indication: Product used for unknown indication
     Dosage: 1000 MG, QD
     Route: 065

REACTIONS (3)
  - Diabetes mellitus [Unknown]
  - Renal disorder [Unknown]
  - Dizziness [Recovered/Resolved]
